FAERS Safety Report 18079949 (Version 1)
Quarter: 2020Q3

REPORT INFORMATION
  Report Type: Spontaneous
  Country: US (occurrence: US)
  Receive Date: 20200728
  Receipt Date: 20200728
  Transmission Date: 20201103
  Serious: No
  Sender: FDA-Public Use
  Company Number: None

PATIENT

DRUGS (1)
  1. VALPROIC ACID SYRUP 250 MG/5 ML [Suspect]
     Active Substance: VALPROIC ACID
     Route: 048

REACTIONS (3)
  - Alopecia [None]
  - Trichorrhexis [None]
  - Hair texture abnormal [None]

NARRATIVE: CASE EVENT DATE: 20200123
